FAERS Safety Report 7611020-8 (Version None)
Quarter: 2011Q3

REPORT INFORMATION
  Report Type: 
  Country: None (occurrence: None)
  Receive Date: 20110715
  Receipt Date: 20110705
  Transmission Date: 20111222
  Serious: Yes (Other)
  Sender: FDA-Public Use
  Company Number: JP-JNJFOC-20101204586

PATIENT
  Age: 58 Year
  Sex: Male
  Weight: 92 kg

DRUGS (19)
  1. REMICADE [Suspect]
     Route: 042
     Dates: start: 20100519
  2. REMICADE [Suspect]
     Route: 042
     Dates: start: 20100630
  3. ZOLPIDEM [Concomitant]
     Indication: INSOMNIA
     Route: 048
  4. REMICADE [Suspect]
     Route: 042
     Dates: start: 20101020
  5. REMICADE [Suspect]
     Route: 042
     Dates: start: 20100825
  6. NORVASC [Concomitant]
     Indication: HYPERTENSION
     Route: 048
  7. RISEDRONATE SODIUM [Concomitant]
     Indication: OSTEOPOROSIS
     Route: 048
  8. URINORM [Concomitant]
     Indication: HYPERURICAEMIA
     Route: 048
  9. REMICADE [Suspect]
     Indication: PSORIATIC ARTHROPATHY
     Route: 042
     Dates: start: 20100825
  10. REMICADE [Suspect]
     Route: 042
     Dates: start: 20100602
  11. REMICADE [Suspect]
     Indication: PUSTULAR PSORIASIS
     Route: 042
     Dates: start: 20100519
  12. LOSARTAN POTASSIUM AND HYDROCHLOROTHIAZIDE [Concomitant]
     Indication: HYPERTENSION
     Dosage: 1 TAB
     Route: 048
  13. CLOBETASOL PROPIONATE [Suspect]
     Indication: PUSTULAR PSORIASIS
     Route: 061
     Dates: end: 20100715
  14. LIPITOR [Concomitant]
     Indication: HYPERLIPIDAEMIA
     Route: 048
  15. REMICADE [Suspect]
     Route: 042
     Dates: start: 20100602
  16. TACALCITOL [Concomitant]
     Indication: PUSTULAR PSORIASIS
     Route: 061
  17. REMICADE [Suspect]
     Route: 042
     Dates: start: 20101020
  18. REMICADE [Suspect]
     Route: 042
     Dates: start: 20100630
  19. CYCLOSPORINE [Concomitant]
     Indication: PUSTULAR PSORIASIS
     Route: 048

REACTIONS (3)
  - HEPATIC FUNCTION ABNORMAL [None]
  - ADRENAL INSUFFICIENCY [None]
  - TENSION HEADACHE [None]
